FAERS Safety Report 9090169 (Version 2)
Quarter: 2013Q2

REPORT INFORMATION
  Report Type: Spontaneous
  Country: JP (occurrence: JP)
  Receive Date: 20130218
  Receipt Date: 20130422
  Transmission Date: 20140414
  Serious: Yes (Other)
  Sender: FDA-Public Use
  Company Number: JP-009507513-1302JPN005122

PATIENT
  Age: 48 Year
  Sex: Female
  Weight: 61 kg

DRUGS (20)
  1. DECADRON PHOSPHATE INJECTION 6.6MG [Suspect]
     Indication: PROPHYLAXIS OF NAUSEA AND VOMITING
     Dosage: 6.6 MG, QD
     Route: 041
     Dates: start: 20121024, end: 20121027
  2. DECADRON PHOSPHATE INJECTION 6.6MG [Suspect]
     Dosage: DAILY DOSAGE UNKNOWN, QD
     Route: 041
     Dates: start: 20120926
  3. DECADRON PHOSPHATE INJECTION 6.6MG [Suspect]
     Dosage: DAILY DOSAGE UNKNOWN
     Route: 041
  4. DECADRON PHOSPHATE INJECTION 6.6MG [Suspect]
     Dosage: 6.6 MG, QD
     Route: 041
     Dates: start: 20121127
  5. COSMEGEN [Suspect]
     Indication: BENIGN HYDATIDIFORM MOLE
     Dosage: 0.5 MG, QD
     Route: 042
     Dates: start: 20121024, end: 20121027
  6. COSMEGEN [Suspect]
     Dosage: DAILY DOSAGE UNKNWON, QD
     Route: 042
     Dates: start: 20120926
  7. COSMEGEN [Suspect]
     Dosage: DAILY DOSAGE UNKNWON
     Route: 042
  8. COSMEGEN [Suspect]
     Dosage: 0.5 MG, QD
     Route: 042
     Dates: start: 20121127
  9. METHOTREXATE [Suspect]
     Indication: BENIGN HYDATIDIFORM MOLE
     Dosage: 50 MG, QOD
     Route: 030
     Dates: start: 20121024, end: 20121030
  10. METHOTREXATE [Suspect]
     Dosage: DAILY DOSAGE UNKNOWN, QOD
     Route: 030
     Dates: start: 20120926
  11. METHOTREXATE [Suspect]
     Dosage: DAILY DOSAGE UNKNOWN
     Route: 030
     Dates: start: 20120926
  12. METHOTREXATE [Suspect]
     Dosage: 50 MG, QOD
     Route: 030
     Dates: start: 20121127
  13. GASTER [Suspect]
     Dosage: 20 MG, QD
     Route: 041
     Dates: start: 20121024, end: 20121027
  14. GASTER [Suspect]
     Dosage: DAILY DOSAGE UNKNOWN, QD
     Route: 041
     Dates: start: 20120926
  15. GASTER [Suspect]
     Dosage: DAILY DOSAGE UNKNOWN
     Route: 041
  16. GASTER [Suspect]
     Dosage: 20 MG, QD
     Route: 041
     Dates: start: 20121127
  17. LEUCOVORIN [Concomitant]
     Dosage: DAILY DOSE UNKNOWN
  18. GRANISETRON [Concomitant]
     Dosage: DAILY DOSE UNKNOWN
     Route: 041
  19. MEYLON [Concomitant]
     Dosage: DAILY DOSE UNKNOWN
     Route: 042
  20. SOLDEM 1 [Concomitant]
     Dosage: DAILY DOSE UNKNOWN
     Route: 041

REACTIONS (2)
  - Peripheral embolism [Unknown]
  - Peripheral embolism [None]
